FAERS Safety Report 5205942-5 (Version None)
Quarter: 2007Q1

REPORT INFORMATION
  Report Type: 
  Country: None (occurrence: None)
  Receive Date: 20070111
  Receipt Date: 20070110
  Transmission Date: 20070707
  Serious: Yes (Hospitalization)
  Sender: FDA-Public Use
  Company Number: JP-JPN-A200605086

PATIENT
  Age: 34 Year
  Sex: Female
  Weight: 60 kg

DRUGS (6)
  1. PAXIL [Suspect]
     Indication: DYSTHYMIC DISORDER
     Dosage: 10MG PER DAY
     Route: 048
     Dates: start: 20061114, end: 20061120
  2. DEPAS [Concomitant]
     Indication: DYSTHYMIC DISORDER
     Dosage: 2MG FOUR TIMES PER DAY
     Route: 048
     Dates: start: 20060819, end: 20061126
  3. AMOBAN [Concomitant]
     Indication: DYSTHYMIC DISORDER
     Dosage: 7.5MG PER DAY
     Route: 048
     Dates: start: 20060930
  4. CHINESE MEDICINE [Concomitant]
     Indication: DYSTHYMIC DISORDER
     Dosage: 7.5MG THREE TIMES PER DAY
     Route: 048
     Dates: start: 20060819, end: 20061126
  5. DOGMATYL [Concomitant]
     Indication: DYSTHYMIC DISORDER
     Dosage: 100MG TWICE PER DAY
     Route: 048
     Dates: start: 20061107, end: 20061113
  6. JAPANESE MEDICATION [Concomitant]
     Indication: HEADACHE
     Dosage: .5G PER DAY
     Route: 048
     Dates: start: 20061120, end: 20061126

REACTIONS (7)
  - DRUG WITHDRAWAL SYNDROME [None]
  - HEADACHE [None]
  - HYPERREFLEXIA [None]
  - INSOMNIA [None]
  - PYREXIA [None]
  - RESTLESSNESS [None]
  - TREMOR [None]
